FAERS Safety Report 21825466 (Version 1)
Quarter: 2023Q1

REPORT INFORMATION
  Report Type: Spontaneous
  Country: US (occurrence: None)
  Receive Date: 20230105
  Receipt Date: 20230105
  Transmission Date: 20230418
  Serious: Yes (unspecified)
  Sender: FDA-Public Use
  Company Number: None

PATIENT
  Age: 50 Year
  Sex: Female

DRUGS (24)
  1. LISINOPRIL [Suspect]
     Active Substance: LISINOPRIL
     Indication: Hypertension
     Dosage: FREQUENCY : DAILY;?
     Route: 048
     Dates: start: 20221123, end: 20221231
  2. LISINOPRIL [Suspect]
     Active Substance: LISINOPRIL
     Indication: Coronary artery disease
  3. LISINOPRIL [Suspect]
     Active Substance: LISINOPRIL
     Indication: Atrial fibrillation
  4. Acetaminophen 650mg [Concomitant]
     Dates: start: 20221121, end: 20230104
  5. Maalox Plus Oral Suspension [Concomitant]
     Dates: start: 20221201, end: 20230104
  6. AMLODIPINE [Concomitant]
     Active Substance: AMLODIPINE BESYLATE
     Dates: start: 20221231, end: 20230104
  7. APIXABAN [Concomitant]
     Active Substance: APIXABAN
     Dates: start: 20221117, end: 20230104
  8. ASPIRIN [Concomitant]
     Active Substance: ASPIRIN
     Dates: start: 20221117, end: 20230104
  9. ATORVASTATIN [Concomitant]
     Active Substance: ATORVASTATIN
     Dates: start: 20221117, end: 20230104
  10. Cepacol Lozenge [Concomitant]
     Dates: start: 20221123, end: 20230104
  11. Bisacodyl 5mg [Concomitant]
     Dates: start: 20221201, end: 20230104
  12. CLOPIDOGREL [Concomitant]
     Active Substance: CLOPIDOGREL BISULFATE
     Dates: start: 20221117, end: 20230104
  13. CLOZAPINE [Concomitant]
     Active Substance: CLOZAPINE
     Dates: start: 20221205, end: 20230104
  14. Depakote DR 750mg [Concomitant]
     Dates: start: 20221228, end: 20230104
  15. DOCUSATE [Concomitant]
     Active Substance: DOCUSATE
     Dates: start: 20221128, end: 20230104
  16. Guaifenesin 200mg liquid [Concomitant]
     Dates: start: 20221123, end: 20230104
  17. IBUPROFEN [Concomitant]
     Active Substance: IBUPROFEN
     Dates: start: 20221229, end: 20230104
  18. INSULIN LISPRO [Concomitant]
     Active Substance: INSULIN LISPRO
     Dates: start: 20221209, end: 20230104
  19. LIDOCAINE PATCH [Concomitant]
     Active Substance: LIDOCAINE
     Dates: start: 20221118, end: 20230104
  20. METFORMIN [Concomitant]
     Active Substance: METFORMIN HYDROCHLORIDE
     Dates: start: 20221117, end: 20230104
  21. METOPROLOL SUCCINATE [Concomitant]
     Active Substance: METOPROLOL SUCCINATE
     Dates: start: 20221130, end: 20230104
  22. Nicotine 2mg Gum [Concomitant]
     Dates: start: 20221201, end: 20230104
  23. Olanzapine 5mg Tab [Concomitant]
     Dates: start: 20221116, end: 20230104
  24. Risperidone 2mg Tab [Concomitant]
     Dates: start: 20221229, end: 20230104

REACTIONS (9)
  - Anxiety [None]
  - Tearfulness [None]
  - Swelling face [None]
  - Erythema [None]
  - Lip swelling [None]
  - Feeling abnormal [None]
  - Hypertension [None]
  - Respiratory rate increased [None]
  - Angioedema [None]

NARRATIVE: CASE EVENT DATE: 20221231
